FAERS Safety Report 5691197-4 (Version None)
Quarter: 2008Q2

REPORT INFORMATION
  Report Type: 
  Country: None (occurrence: None)
  Receive Date: 20080401
  Receipt Date: 20080401
  Transmission Date: 20081010
  Serious: Yes (Other)
  Sender: FDA-Public Use
  Company Number: None

PATIENT
  Age: 41 Year
  Sex: Female

DRUGS (2)
  1. ZYVOX [Suspect]
     Indication: FOLLICULITIS
     Dosage: 600 MG BID PO
     Route: 048
     Dates: start: 20080314, end: 20080319
  2. ZYVOX [Suspect]
     Indication: STAPHYLOCOCCAL INFECTION
     Dosage: 600 MG BID PO
     Route: 048
     Dates: start: 20080314, end: 20080319

REACTIONS (3)
  - CONVULSION [None]
  - DIALYSIS [None]
  - SYNCOPE [None]
